FAERS Safety Report 8564257-8 (Version None)
Quarter: 2012Q3

REPORT INFORMATION
  Report Type: 
  Country: None (occurrence: None)
  Receive Date: 20120803
  Receipt Date: 20120724
  Transmission Date: 20120928
  Serious: Yes (Other)
  Sender: FDA-Public Use
  Company Number: JP-JNJFOC-20120712941

PATIENT

DRUGS (1)
  1. TOPIRAMATE [Suspect]
     Indication: EPILEPSY
     Dosage: 1 TO 3 MG/KG
     Route: 065

REACTIONS (4)
  - GLOSSOPTOSIS [None]
  - SOMNOLENCE [None]
  - DYSPNOEA [None]
  - HYPOTONIA [None]
